FAERS Safety Report 16572835 (Version 2)
Quarter: 2019Q3

REPORT INFORMATION
  Report Type: Spontaneous
  Country: US (occurrence: US)
  Receive Date: 20190715
  Receipt Date: 20190912
  Transmission Date: 20191004
  Serious: Yes (Hospitalization, Other)
  Sender: FDA-Public Use
  Company Number: US-JNJFOC-20190709709

PATIENT
  Sex: Male

DRUGS (1)
  1. ERLEADA [Suspect]
     Active Substance: APALUTAMIDE
     Indication: PROSTATE CANCER
     Route: 065
     Dates: start: 20190524

REACTIONS (13)
  - Middle insomnia [Unknown]
  - Decreased appetite [Unknown]
  - Bladder operation [Unknown]
  - Dysgeusia [Unknown]
  - Pain [Unknown]
  - Balance disorder [Unknown]
  - Vertigo [Unknown]
  - Pollakiuria [Unknown]
  - Surgery [Unknown]
  - Dyspnoea [Unknown]
  - Dizziness [Unknown]
  - Malignant melanoma [Unknown]
  - Pruritus [Unknown]
